FAERS Safety Report 6555456-5 (Version None)
Quarter: 2010Q1

REPORT INFORMATION
  Report Type: 
  Country: None (occurrence: None)
  Receive Date: 20100128
  Receipt Date: 20100122
  Transmission Date: 20100710
  Serious: Yes (Death, Hospitalization, Other)
  Sender: FDA-Public Use
  Company Number: FR-BAYER-201013106GPV

PATIENT
  Age: 63 Year
  Sex: Male
  Weight: 56 kg

DRUGS (10)
  1. CIPROFLOXACIN HCL [Suspect]
     Indication: BRONCHITIS
     Dosage: TOTAL DAILY DOSE: 1000 MG  UNIT DOSE: 500 MG
     Route: 048
     Dates: start: 20090210, end: 20090301
  2. TEMODAL [Suspect]
     Indication: DRUG USE FOR UNKNOWN INDICATION
     Dosage: TOTAL DAILY DOSE: 125 MG  UNIT DOSE: 125 MG
     Route: 048
     Dates: start: 20090122
  3. OROKEN [Suspect]
     Indication: BRONCHITIS
     Dosage: TOTAL DAILY DOSE: 400 MG  UNIT DOSE: 200 MG
     Route: 048
     Dates: start: 20090210, end: 20090301
  4. SOLUPRED [Suspect]
     Indication: BRAIN OEDEMA
     Dosage: TOTAL DAILY DOSE: 40 MG  UNIT DOSE: 20 MG
     Route: 048
     Dates: start: 20090122
  5. OMEPRAZOLE [Concomitant]
     Indication: PROPHYLAXIS AGAINST GASTROINTESTINAL ULCER
     Dosage: TOTAL DAILY DOSE: 20 MG  UNIT DOSE: 20 MG
     Route: 048
     Dates: start: 20090218
  6. PYOSTACINE [Concomitant]
     Indication: BRONCHITIS
     Dates: start: 20090301, end: 20090303
  7. VANCOMYCIN HCL [Concomitant]
     Indication: BRONCHITIS
     Route: 042
     Dates: start: 20090303, end: 20090304
  8. AMIKIN [Concomitant]
     Indication: BRONCHITIS
     Route: 042
     Dates: start: 20090303, end: 20090304
  9. FORTUM [Concomitant]
     Indication: BRONCHITIS
     Route: 042
     Dates: start: 20090304
  10. GRANOCYTE [Concomitant]
     Indication: BONE MARROW FAILURE
     Dosage: 1 AMP PER DAY
     Route: 058
     Dates: start: 20090219

REACTIONS (1)
  - BONE MARROW FAILURE [None]
